FAERS Safety Report 8035748-3 (Version None)
Quarter: 2012Q1

REPORT INFORMATION
  Report Type: 
  Country: None (occurrence: None)
  Receive Date: 20120111
  Receipt Date: 20120105
  Transmission Date: 20120608
  Serious: Yes (Death, Hospitalization)
  Sender: FDA-Public Use
  Company Number: CA-GENZYME-THYM-1003043

PATIENT

DRUGS (6)
  1. GANCICLOVIR [Concomitant]
     Indication: PRODUCT USED FOR UNKNOWN INDICATION
     Dosage: UNK
     Route: 065
  2. CYCLOSPORINE [Concomitant]
     Indication: PRODUCT USED FOR UNKNOWN INDICATION
     Dosage: UNK
     Route: 065
  3. THYMOGLOBULIN [Suspect]
     Dosage: 2 MG/KG, UNK
     Route: 042
     Dates: start: 20110901, end: 20110901
  4. CAMPATH [Suspect]
     Indication: GRAFT VERSUS HOST DISEASE
     Dosage: UNK
     Route: 065
  5. THYMOGLOBULIN [Suspect]
     Dosage: 2 MG/KG, UNK
     Route: 042
     Dates: start: 20110829, end: 20110829
  6. THYMOGLOBULIN [Suspect]
     Indication: PROPHYLAXIS AGAINST GRAFT VERSUS HOST DISEASE
     Dosage: .5 MG/KG, UNK
     Route: 042
     Dates: start: 20110828, end: 20110828

REACTIONS (3)
  - CLOSTRIDIAL INFECTION [None]
  - GRAFT VERSUS HOST DISEASE IN INTESTINE [None]
  - THERAPEUTIC RESPONSE DECREASED [None]
